FAERS Safety Report 6311358-0 (Version None)
Quarter: 2009Q3

REPORT INFORMATION
  Report Type: 
  Country: None (occurrence: None)
  Receive Date: 20090817
  Receipt Date: 20090812
  Transmission Date: 20100115
  Serious: Yes (Hospitalization, Other)
  Sender: FDA-Public Use
  Company Number: SE-ROXANE LABORATORIES, INC.-2009-RO-00817RO

PATIENT
  Age: 26 Year
  Sex: Male

DRUGS (6)
  1. CITALOPRAM HYDROBROMIDE [Suspect]
  2. CLOZAPINE [Suspect]
  3. ACTIVATED CHARCOAL [Suspect]
     Indication: DRUG TOXICITY
  4. CEFUROXIME [Concomitant]
     Indication: PNEUMONIA ASPIRATION
  5. DIAZEPAM [Concomitant]
     Indication: SEDATION
  6. OXYGEN [Concomitant]
     Indication: OXYGEN SATURATION DECREASED

REACTIONS (4)
  - ANAEMIA [None]
  - DRUG TOXICITY [None]
  - PNEUMONIA ASPIRATION [None]
  - PULMONARY OEDEMA [None]
